FAERS Safety Report 10056883 (Version 2)
Quarter: 2014Q2

REPORT INFORMATION
  Report Type: Report from Study
  Country: CA (occurrence: CA)
  Receive Date: 20140403
  Receipt Date: 20140530
  Transmission Date: 20141212
  Serious: Yes (Hospitalization)
  Sender: FDA-Public Use
  Company Number: CA-JNJFOC-20140318261

PATIENT
  Age: 51 Year
  Sex: Male
  Weight: 36.74 kg

DRUGS (5)
  1. REMICADE [Suspect]
     Indication: CROHN^S DISEASE
     Route: 042
     Dates: start: 20061222
  2. MORPHINE [Concomitant]
     Route: 042
  3. TORADOL [Concomitant]
     Route: 030
  4. GRAVOL [Concomitant]
     Route: 042
  5. PANTOLOC [Concomitant]
     Route: 042

REACTIONS (4)
  - Intestinal obstruction [Unknown]
  - Diarrhoea [Unknown]
  - Nausea [Unknown]
  - Vomiting [Unknown]
